FAERS Safety Report 5695610-8 (Version None)
Quarter: 2008Q2

REPORT INFORMATION
  Report Type: 
  Country: None (occurrence: None)
  Receive Date: 20080407
  Receipt Date: 20080324
  Transmission Date: 20081010
  Serious: No
  Sender: FDA-Public Use
  Company Number: US-BAYER-200817803NA

PATIENT
  Age: 35 Year
  Sex: Female
  Weight: 58 kg

DRUGS (1)
  1. MIRENA [Suspect]
     Indication: CONTRACEPTION
     Route: 015
     Dates: start: 20030801, end: 20071101

REACTIONS (9)
  - ABDOMINAL PAIN [None]
  - AMENORRHOEA [None]
  - DYSPAREUNIA [None]
  - FATIGUE [None]
  - METRORRHAGIA [None]
  - PREGNANCY WITH CONTRACEPTIVE DEVICE [None]
  - PROCEDURAL PAIN [None]
  - UTERINE SPASM [None]
  - VAGINAL HAEMORRHAGE [None]
